FAERS Safety Report 21300574 (Version 1)
Quarter: 2022Q3

REPORT INFORMATION
  Report Type: Spontaneous
  Country: US (occurrence: US)
  Receive Date: 20220907
  Receipt Date: 20220907
  Transmission Date: 20221027
  Serious: Yes (Other)
  Sender: FDA-Public Use
  Company Number: US-SA-SAC00000000289752

PATIENT
  Sex: Male

DRUGS (1)
  1. ZANTAC [Suspect]
     Active Substance: RANITIDINE HYDROCHLORIDE
     Dosage: UNK  SOURCE NAME: PORTAL LEGAL CASE, COUNTRY: UNITED STATES. CLARIFICATION COMMENT: AS PER SPONTANEO
     Route: 048
     Dates: start: 2012, end: 2017

REACTIONS (1)
  - Prostate cancer [Unknown]
